FAERS Safety Report 12206765 (Version 1)
Quarter: 2016Q1

REPORT INFORMATION
  Report Type: Spontaneous
  Country: US (occurrence: US)
  Receive Date: 20160324
  Receipt Date: 20160324
  Transmission Date: 20160526
  Serious: No
  Sender: FDA-Public Use
  Company Number: US-BAYER-2016-056522

PATIENT
  Age: 60 Year
  Sex: Female
  Weight: 58.5 kg

DRUGS (1)
  1. CLARITIN-D 12 HOUR [Suspect]
     Active Substance: LORATADINE\PSEUDOEPHEDRINE SULFATE
     Indication: SEASONAL ALLERGY
     Dosage: 1 DF, QD
     Route: 048
     Dates: start: 20160312, end: 20160313

REACTIONS (3)
  - Dizziness [Recovered/Resolved]
  - Product use issue [None]
  - Dry mouth [Recovered/Resolved]

NARRATIVE: CASE EVENT DATE: 20160312
